FAERS Safety Report 14907219 (Version 2)
Quarter: 2018Q2

REPORT INFORMATION
  Report Type: Report from Study
  Country: CO (occurrence: CO)
  Receive Date: 20180517
  Receipt Date: 20180629
  Transmission Date: 20180711
  Serious: Yes (Death, Disabling, Other)
  Sender: FDA-Public Use
  Company Number: CO-BRISTOL-MYERS SQUIBB COMPANY-BMS-2018-044130

PATIENT
  Age: 68 Year
  Sex: Male

DRUGS (1)
  1. NIVOLUMAB [Suspect]
     Active Substance: NIVOLUMAB
     Indication: LUNG NEOPLASM MALIGNANT
     Dosage: 200 MG, Q2WK
     Route: 042
     Dates: start: 20170823, end: 20180316

REACTIONS (5)
  - Dyspnoea [Recovering/Resolving]
  - Insomnia [Recovering/Resolving]
  - Pulmonary mass [Recovering/Resolving]
  - Death [Fatal]
  - Depression [Recovering/Resolving]

NARRATIVE: CASE EVENT DATE: 20180509
